FAERS Safety Report 4472423-6 (Version None)
Quarter: 2004Q4

REPORT INFORMATION
  Report Type: 
  Country: None (occurrence: None)
  Receive Date: 20041007
  Receipt Date: 20040927
  Transmission Date: 20050328
  Serious: Yes (Life-Threatening, Hospitalization)
  Sender: FDA-Public Use
  Company Number: 200414183BCC

PATIENT
  Age: 88 Year
  Sex: Male
  Weight: 82.1011 kg

DRUGS (2)
  1. ALEVE [Suspect]
     Indication: ARTHRALGIA
     Dosage: 440 MG, OM , ORAL
     Route: 048
  2. TYLENOL [Concomitant]

REACTIONS (2)
  - HAEMATOCHEZIA [None]
  - HAEMORRHAGE [None]
